FAERS Safety Report 6240001-4 (Version None)
Quarter: 2009Q2

REPORT INFORMATION
  Report Type: 
  Country: None (occurrence: None)
  Receive Date: 20090623
  Receipt Date: 20090612
  Transmission Date: 20091009
  Serious: Yes (Other)
  Sender: FDA-Public Use
  Company Number: PHHY2009AU20826

PATIENT
  Sex: Male

DRUGS (3)
  1. CLOZARIL [Suspect]
     Indication: SCHIZOPHRENIA
     Dosage: UNK
     Dates: start: 19960101, end: 20010101
  2. RENITEC PLUS [Concomitant]
     Indication: HYPERTENSION
  3. ZOCOR [Concomitant]

REACTIONS (5)
  - BRUGADA SYNDROME [None]
  - NEUTROPENIA [None]
  - NEUTROPHIL COUNT DECREASED [None]
  - SCHIZOPHRENIA [None]
  - WHITE BLOOD CELL COUNT DECREASED [None]
